FAERS Safety Report 7134194-4 (Version None)
Quarter: 2010Q4

REPORT INFORMATION
  Report Type: 
  Country: None (occurrence: None)
  Receive Date: 20101117
  Receipt Date: 20101101
  Transmission Date: 20110411
  Serious: Yes (Hospitalization)
  Sender: FDA-Public Use
  Company Number: 2010-3447

PATIENT
  Age: 76 Year
  Sex: Female
  Weight: 57.3 kg

DRUGS (10)
  1. DYSPORT [Suspect]
     Indication: MUSCLE SPASTICITY
     Dosage: 1000 UNITS (1000 UNITS, SINGLE CYCLE), INTRAMUSCULAR
     Route: 030
     Dates: start: 20100816, end: 20100816
  2. CHEMOTHERAPY NOS (CHEMOTHERAPEUTICS NOS) [Concomitant]
  3. PULMICORT [Concomitant]
  4. ASPIRIN [Concomitant]
  5. EXEMESTANE [Concomitant]
  6. FUROSEMIDE [Concomitant]
  7. PERINDOPRIL ERBUMINE [Concomitant]
  8. DIPYRIDAMOLE [Concomitant]
  9. LANSOPRAZOLE [Concomitant]
  10. CO-CODAMOL (PANADEINE CO) [Concomitant]

REACTIONS (3)
  - ASTHENIA [None]
  - LOWER RESPIRATORY TRACT INFECTION [None]
  - MOBILITY DECREASED [None]
